FAERS Safety Report 7431903-1 (Version None)
Quarter: 2011Q2

REPORT INFORMATION
  Report Type: 
  Country: None (occurrence: None)
  Receive Date: 20110422
  Receipt Date: 20110420
  Transmission Date: 20111010
  Serious: Yes (Other)
  Sender: FDA-Public Use
  Company Number: JP-PFIZER INC-2011085847

PATIENT

DRUGS (1)
  1. FARMORUBICIN [Suspect]
     Route: 013

REACTIONS (1)
  - RENAL FAILURE ACUTE [None]
